FAERS Safety Report 9413070 (Version 4)
Quarter: 2014Q1

REPORT INFORMATION
  Report Type: Spontaneous
  Country: US (occurrence: US)
  Receive Date: 20130722
  Receipt Date: 20140305
  Transmission Date: 20141002
  Serious: Yes (Other)
  Sender: FDA-Public Use
  Company Number: US-TEVA-417659USA

PATIENT
  Age: 25 Year
  Sex: Female
  Weight: 91.71 kg

DRUGS (4)
  1. PARAGARD 380A [Suspect]
     Indication: CONTRACEPTION
     Route: 015
     Dates: end: 20130326
  2. MULTIVITAMIN [Concomitant]
  3. BIOTIN [Concomitant]
  4. XYZAL [Concomitant]

REACTIONS (6)
  - Embedded device [Not Recovered/Not Resolved]
  - Device dislocation [Recovered/Resolved]
  - Haemorrhage [Unknown]
  - Device expulsion [Recovered/Resolved]
  - Medical device complication [Not Recovered/Not Resolved]
  - Muscle spasms [Unknown]
